FAERS Safety Report 11071424 (Version 2)
Quarter: 2015Q2

REPORT INFORMATION
  Report Type: Spontaneous
  Country: US (occurrence: US)
  Receive Date: 20150428
  Receipt Date: 20150505
  Transmission Date: 20150821
  Serious: Yes (Other)
  Sender: FDA-Public Use
  Company Number: US-BAYER-2015-162296

PATIENT
  Age: 29 Year
  Sex: Female

DRUGS (1)
  1. MIRENA [Suspect]
     Active Substance: LEVONORGESTREL
     Indication: CONTRACEPTION
     Dosage: 20 MCG/24HR, CONT
     Route: 015
     Dates: start: 20140530

REACTIONS (6)
  - Drug ineffective [None]
  - Pain [None]
  - Abortion spontaneous [None]
  - Pregnancy with contraceptive device [None]
  - Medication error [None]
  - Device dislocation [None]

NARRATIVE: CASE EVENT DATE: 2014
